FAERS Safety Report 15197044 (Version 3)
Quarter: 2018Q4

REPORT INFORMATION
  Report Type: Report from Study
  Country: DE (occurrence: DE)
  Receive Date: 20180725
  Receipt Date: 20181109
  Transmission Date: 20190204
  Serious: Yes (Hospitalization)
  Sender: FDA-Public Use
  Company Number: DE-VERTEX PHARMACEUTICALS-2018-004938

PATIENT
  Age: 33 Year
  Sex: Female

DRUGS (13)
  1. DEKRISTOL [Concomitant]
     Active Substance: CHOLECALCIFEROL
     Indication: PANCREATIC FAILURE
     Dosage: 20000 IE, PRN
     Route: 048
     Dates: start: 201712
  2. L-THYROXINE                        /00068001/ [Concomitant]
     Active Substance: LEVOTHYROXINE
     Indication: HYPOTHYROIDISM
     Dosage: 75 MICROGRAM, QD
     Route: 048
     Dates: start: 2014
  3. VX-661/VX-770 [Suspect]
     Active Substance: IVACAFTOR\TEZACAFTOR
     Indication: CYSTIC FIBROSIS
     Dosage: UNK
     Route: 048
     Dates: start: 20180713
  4. AZITHROMYCIN ANHYDROUS. [Concomitant]
     Active Substance: AZITHROMYCIN ANHYDROUS
     Dosage: 500 MG, MON, WED, FRI
  5. ATROVENT [Concomitant]
     Active Substance: IPRATROPIUM BROMIDE
     Indication: CYSTIC FIBROSIS LUNG
     Dosage: 250 MICROGRAM, BID
     Route: 055
     Dates: start: 201710
  6. VIANI [Concomitant]
     Active Substance: FLUTICASONE PROPIONATE\SALMETEROL XINAFOATE
     Indication: CYSTIC FIBROSIS LUNG
     Dosage: 25/250 MICROGRAM, BID
     Route: 055
     Dates: start: 2013
  7. VITAMIN K [Concomitant]
     Active Substance: PHYTONADIONE
  8. COLIFIN [Concomitant]
     Active Substance: COLISTIMETHATE SODIUM
     Indication: CYSTIC FIBROSIS LUNG
     Dosage: 1000000 IE,BID
     Route: 055
     Dates: start: 201710
  9. MUCOCLEAR                          /00075401/ [Concomitant]
     Indication: CYSTIC FIBROSIS LUNG
     Dosage: 6 %, QD
     Route: 055
     Dates: start: 2014
  10. CREON [Concomitant]
     Active Substance: PANCRELIPASE AMYLASE\PANCRELIPASE LIPASE\PANCRELIPASE PROTEASE
     Indication: PANCREATIC FAILURE
     Dosage: 40000 IE, PRN
     Route: 048
     Dates: start: 1990
  11. ADEK [Concomitant]
     Dosage: UNK, BID
     Route: 048
     Dates: start: 201710
  12. SPIRIVA [Concomitant]
     Active Substance: TIOTROPIUM BROMIDE MONOHYDRATE
     Indication: CYSTIC FIBROSIS LUNG
     Dosage: 2.5 MICROGRAM, QD
     Dates: start: 2016
  13. SALMETEROL [Concomitant]
     Active Substance: SALMETEROL
     Indication: CYSTIC FIBROSIS LUNG
     Dosage: 25 MICROGRAM, BID
     Route: 055
     Dates: start: 2013

REACTIONS (1)
  - Haemoptysis [Recovered/Resolved]

NARRATIVE: CASE EVENT DATE: 20180715
